FAERS Safety Report 10775739 (Version 1)
Quarter: 2015Q1

REPORT INFORMATION
  Report Type: Spontaneous
  Country: GB (occurrence: GB)
  Receive Date: 20150209
  Receipt Date: 20150209
  Transmission Date: 20150721
  Serious: Yes (Other)
  Sender: FDA-Public Use
  Company Number: GB-SA-2015SA013042

PATIENT
  Age: 27 Year
  Sex: Male
  Weight: 120 kg

DRUGS (14)
  1. BACLOFEN. [Concomitant]
     Active Substance: BACLOFEN
  2. METHYLPREDNISOLONE. [Concomitant]
     Active Substance: METHYLPREDNISOLONE
  3. DOCUSATE [Concomitant]
     Active Substance: DOCUSATE
  4. OXYBUTYNIN [Concomitant]
     Active Substance: OXYBUTYNIN
  5. SENNA [Concomitant]
     Active Substance: SENNA LEAF\SENNOSIDES\SENNOSIDES A AND B
  6. CHLORPHENAMINE [Concomitant]
     Active Substance: CHLORPHENIRAMINE MALEATE
  7. GABAPENTIN. [Concomitant]
     Active Substance: GABAPENTIN
  8. PARACETAMOL [Concomitant]
     Active Substance: ACETAMINOPHEN
  9. MACROGOL [Concomitant]
     Active Substance: POLYETHYLENE GLYCOLS
  10. ACICLOVIR [Concomitant]
     Active Substance: ACYCLOVIR
  11. DALTEPARIN [Concomitant]
     Active Substance: DALTEPARIN
  12. ALEMTUZUMAB [Suspect]
     Active Substance: ALEMTUZUMAB
     Indication: MULTIPLE SCLEROSIS
     Route: 042
     Dates: start: 20140702, end: 20140702
  13. LACTULOSE. [Concomitant]
     Active Substance: LACTULOSE
  14. OMEPRAZOLE. [Concomitant]
     Active Substance: OMEPRAZOLE

REACTIONS (2)
  - Hyperthermia [Recovered/Resolved]
  - Tachycardia [Recovered/Resolved]

NARRATIVE: CASE EVENT DATE: 20140702
